FAERS Safety Report 6673526-8 (Version None)
Quarter: 2010Q2

REPORT INFORMATION
  Report Type: 
  Country: None (occurrence: None)
  Receive Date: 20100408
  Receipt Date: 20100331
  Transmission Date: 20101027
  Serious: Yes (Hospitalization)
  Sender: FDA-Public Use
  Company Number: FR-SANOFI-AVENTIS-2010SA018473

PATIENT
  Age: 60 Year
  Sex: Male

DRUGS (5)
  1. ELOXATIN [Suspect]
     Indication: NON-HODGKIN'S LYMPHOMA
     Dosage: DOSE:5 MILLIGRAM(S)/MILLILITRE
     Route: 041
     Dates: start: 20100127, end: 20100127
  2. MABTHERA [Suspect]
     Indication: NON-HODGKIN'S LYMPHOMA
     Route: 042
     Dates: start: 20100127, end: 20100127
  3. GEMZAR [Suspect]
     Indication: NON-HODGKIN'S LYMPHOMA
     Route: 042
     Dates: start: 20100127, end: 20100127
  4. PAROXETINE HCL [Concomitant]
     Route: 065
  5. AMOXICILLIN [Concomitant]
     Dates: start: 20100215, end: 20100218

REACTIONS (6)
  - DERMATITIS EXFOLIATIVE [None]
  - DRUG ERUPTION [None]
  - EOSINOPHILIA [None]
  - ERYTHEMA [None]
  - MOUTH ULCERATION [None]
  - PRURITUS [None]
